FAERS Safety Report 5355862-0 (Version None)
Quarter: 2007Q2

REPORT INFORMATION
  Report Type: 
  Country: None (occurrence: None)
  Receive Date: 20070611
  Receipt Date: 20070611
  Transmission Date: 20071010
  Serious: Yes (Hospitalization)
  Sender: FDA-Public Use
  Company Number: None

PATIENT
  Sex: Male
  Weight: 65.54 kg

DRUGS (3)
  1. TEMOZOLOMIDE [Suspect]
     Dosage: 5720 MG
  2. TEMOZOLOMIDE [Suspect]
  3. TEMOZOLOMIDE [Suspect]

REACTIONS (4)
  - CHILLS [None]
  - FEBRILE NEUTROPENIA [None]
  - HEPATITIS [None]
  - MUCOSAL INFLAMMATION [None]
